FAERS Safety Report 24958337 (Version 1)
Quarter: 2025Q1

REPORT INFORMATION
  Report Type: Report from Study
  Country: US (occurrence: US)
  Receive Date: 20250212
  Receipt Date: 20250212
  Transmission Date: 20250409
  Serious: Yes (Hospitalization)
  Sender: DECIPHERA PHARMACEUTICALS
  Company Number: US-DECIPHERA PHARMACEUTICALS LLC-2025US000097

PATIENT
  Age: 57 Year
  Sex: Male

DRUGS (1)
  1. QINLOCK [Suspect]
     Active Substance: RIPRETINIB
     Indication: Soft tissue sarcoma
     Dosage: 150 MILLIGRAM, QD
     Route: 048
     Dates: start: 20240907

REACTIONS (3)
  - Urinary tract infection [Unknown]
  - Upper respiratory tract infection [Unknown]
  - Product use in unapproved indication [Unknown]
